FAERS Safety Report 8448322-1 (Version None)
Quarter: 2012Q2

REPORT INFORMATION
  Report Type: 
  Country: None (occurrence: None)
  Receive Date: 20120619
  Receipt Date: 20120612
  Transmission Date: 20120825
  Serious: No
  Sender: FDA-Public Use
  Company Number: US-PFIZER INC-2012141662

PATIENT
  Sex: Male

DRUGS (6)
  1. KEFLEX [Suspect]
     Dosage: UNK
  2. AMBIEN [Suspect]
     Dosage: UNK
  3. SEPTRA [Suspect]
     Dosage: UNK
  4. VICODIN [Suspect]
     Dosage: UNK
  5. WELLBUTRIN [Suspect]
     Dosage: UNK
  6. VIOXX [Suspect]
     Dosage: UNK

REACTIONS (1)
  - DRUG HYPERSENSITIVITY [None]
